FAERS Safety Report 18103781 (Version 2)
Quarter: 2020Q3

REPORT INFORMATION
  Report Type: Report from Study
  Country: BE (occurrence: BE)
  Receive Date: 20200803
  Receipt Date: 20200805
  Transmission Date: 20201103
  Serious: Yes (Hospitalization)
  Sender: FDA-Public Use
  Company Number: PHHY2015BE069445

PATIENT
  Age: 66 Year
  Sex: Female

DRUGS (4)
  1. GILENYA [Suspect]
     Active Substance: FINGOLIMOD HYDROCHLORIDE
     Indication: MULTIPLE SCLEROSIS
     Dosage: 0.5 MG, QD
     Route: 048
     Dates: start: 20121213, end: 20190809
  2. ASAFLOW [Concomitant]
     Active Substance: ASPIRIN
     Indication: FATIGUE
     Dosage: 80 MG, UNK
     Route: 065
  3. INDAPAMIDE. [Concomitant]
     Active Substance: INDAPAMIDE
     Indication: HYPERTENSION
     Dosage: 2.5 MG, UNK
     Route: 065
  4. CYMBALTA [Concomitant]
     Active Substance: DULOXETINE HYDROCHLORIDE
     Indication: DEPRESSION
     Dosage: UNK
     Route: 065

REACTIONS (10)
  - Paraesthesia [Unknown]
  - Alanine aminotransferase increased [Unknown]
  - Pleuropericarditis [Recovered/Resolved]
  - Stress [Unknown]
  - Carotid arteriosclerosis [Unknown]
  - Chest pain [Not Recovered/Not Resolved]
  - Viral pericarditis [Recovered/Resolved]
  - Influenza like illness [Unknown]
  - Gamma-glutamyltransferase increased [Unknown]
  - Chest discomfort [Unknown]

NARRATIVE: CASE EVENT DATE: 201412
